FAERS Safety Report 12628229 (Version 1)
Quarter: 2016Q3

REPORT INFORMATION
  Report Type: Spontaneous
  Country: US (occurrence: US)
  Receive Date: 20160808
  Receipt Date: 20160808
  Transmission Date: 20161109
  Serious: No
  Sender: FDA-Public Use
  Company Number: US-ASTRAZENECA-2016SE76088

PATIENT
  Age: 53 Year
  Sex: Female
  Weight: 54.4 kg

DRUGS (5)
  1. BYDUREON [Suspect]
     Active Substance: EXENATIDE
     Indication: TYPE 2 DIABETES MELLITUS
     Route: 058
     Dates: start: 201606
  2. MAGNESIUM [Concomitant]
     Active Substance: MAGNESIUM
     Indication: RESTLESS LEGS SYNDROME
     Route: 048
     Dates: start: 201604
  3. CRESTOR [Suspect]
     Active Substance: ROSUVASTATIN CALCIUM
     Indication: BLOOD CHOLESTEROL INCREASED
     Route: 048
  4. VITAMIN D2 [Concomitant]
     Active Substance: ERGOCALCIFEROL
     Indication: VITAMIN D DECREASED
     Route: 048
  5. UVASTATIN [Concomitant]
     Indication: BLOOD CHOLESTEROL INCREASED
     Route: 048

REACTIONS (9)
  - Tension headache [Unknown]
  - Intentional product misuse [Unknown]
  - Blood glucose decreased [Unknown]
  - Tremor [Unknown]
  - Restless legs syndrome [Unknown]
  - Vitamin D decreased [Unknown]
  - Insomnia [Unknown]
  - Feeling jittery [Unknown]
  - Asthenia [Unknown]

NARRATIVE: CASE EVENT DATE: 2016
